FAERS Safety Report 9788328 (Version 1)
Quarter: 2013Q4

REPORT INFORMATION
  Report Type: Report from Study
  Country: US (occurrence: US)
  Receive Date: 20131230
  Receipt Date: 20131230
  Transmission Date: 20140711
  Serious: Yes (Hospitalization, Other)
  Sender: FDA-Public Use
  Company Number: US-PURDUE-USA-2013-0109828

PATIENT
  Sex: Female

DRUGS (1)
  1. OXY CR TAB [Suspect]
     Indication: PRODUCT USED FOR UNKNOWN INDICATION
     Dosage: 80 MG, TID
     Route: 048
     Dates: start: 201001

REACTIONS (3)
  - Hip arthroplasty [Unknown]
  - Cholecystectomy [Unknown]
  - Vomiting [Unknown]
